FAERS Safety Report 6287730-4 (Version None)
Quarter: 2009Q3

REPORT INFORMATION
  Report Type: 
  Country: None (occurrence: None)
  Receive Date: 20090727
  Receipt Date: 20090727
  Transmission Date: 20100115
  Serious: No
  Sender: FDA-Public Use
  Company Number: None

PATIENT
  Sex: Female

DRUGS (1)
  1. METOPROLOL TARTRATE [Suspect]
     Dosage: 50 MG
     Dates: start: 20090709

REACTIONS (7)
  - FEELING ABNORMAL [None]
  - FEELING HOT [None]
  - MALAISE [None]
  - NAIL DISCOLOURATION [None]
  - NAUSEA [None]
  - PAIN IN EXTREMITY [None]
  - TREMOR [None]
